FAERS Safety Report 15077302 (Version 1)
Quarter: 2018Q2

REPORT INFORMATION
  Report Type: Spontaneous
  Country: US (occurrence: US)
  Receive Date: 20180627
  Receipt Date: 20180627
  Transmission Date: 20180711
  Serious: No
  Sender: FDA-Public Use
  Company Number: US-GLAXOSMITHKLINE-US2018112082

PATIENT
  Sex: Female

DRUGS (3)
  1. BREO ELLIPTA [Suspect]
     Active Substance: FLUTICASONE FUROATE\VILANTEROL TRIFENATATE
     Indication: ASTHMA
     Dosage: UNKNOWN
     Route: 055
     Dates: start: 2017
  2. BREO ELLIPTA [Suspect]
     Active Substance: FLUTICASONE FUROATE\VILANTEROL TRIFENATATE
     Indication: CHRONIC OBSTRUCTIVE PULMONARY DISEASE
  3. XOLAIR [Suspect]
     Active Substance: OMALIZUMAB
     Indication: PRODUCT USED FOR UNKNOWN INDICATION

REACTIONS (4)
  - Alopecia [Not Recovered/Not Resolved]
  - Swelling face [Unknown]
  - Weight increased [Not Recovered/Not Resolved]
  - Visual impairment [Not Recovered/Not Resolved]
